FAERS Safety Report 8770499 (Version 1)
Quarter: 2012Q4

REPORT INFORMATION
  Report Type: 
  Country: BR (occurrence: BR)
  Receive Date: 20120906
  Receipt Date: 20120906
  Transmission Date: 20130627
  Serious: Yes (Other)
  Sender: FDA-Public Use
  Company Number: BR-SANOFI-AVENTIS-2012SA063434

PATIENT
  Age: 58 Year
  Sex: Female
  Weight: 80 kg

DRUGS (14)
  1. LANTUS [Suspect]
     Indication: DIABETES
     Dosage: Form - cartridge 3 ml
     Route: 058
     Dates: start: 2002
  2. CLIKSTAR [Suspect]
     Indication: DEVICE THERAPY
  3. CLIKSTAR [Suspect]
     Indication: DEVICE THERAPY
     Dates: start: 2002
  4. FLUDROCORTISONE [Suspect]
     Indication: ADDISON^S DISEASE
     Dosage: strength: 0.05 mg
     Route: 048
  5. DEFLAZACORT [Suspect]
     Indication: ADDISON^S DISEASE
     Dosage: strength: 7.5 mg
     Route: 048
  6. ATORVASTATIN [Concomitant]
     Indication: PROPHYLAXIS
     Dosage: strength: 10 mg
     Route: 048
  7. CYANOCOBALAMIN/PYRIDOXINE/THIAMINE [Concomitant]
     Indication: VITAMIN SUPPLEMENTATION
     Dosage: strength: 500 mg
     Route: 048
  8. MULTIVITAMINS [Concomitant]
     Indication: EYE DISORDER NOS
     Route: 048
     Dates: start: 2010
  9. NOVONORM [Concomitant]
     Dosage: strength: 2 mg; 2 tabs daily before meals
     Route: 048
  10. WARFARIN SODIUM [Concomitant]
     Indication: DISORDER CIRCULATORY SYSTEM
     Dosage: strength: 5 mg
     Route: 048
  11. FOLIC ACID [Concomitant]
     Indication: VITAMIN SUPPLEMENTATION
     Dosage: strength: 5 mg
     Route: 048
     Dates: start: 2007
  12. INSULIN, REGULAR [Concomitant]
     Indication: DIABETES
     Dosage: frequency: according to glycemia
     Route: 048
  13. PANTOPRAZOLE [Concomitant]
     Indication: GASTROINTESTINAL DISORDER NOS
     Dosage: strength: 20 mg
     Route: 048
  14. COLECALCIFEROL [Concomitant]
     Indication: VITAMIN SUPPLEMENTATION
     Route: 048
     Dates: start: 2010

REACTIONS (5)
  - Rheumatoid arthritis [Not Recovered/Not Resolved]
  - Deformity [Not Recovered/Not Resolved]
  - Limb immobilisation [Recovering/Resolving]
  - Vein disorder [Recovering/Resolving]
  - Pain [Recovering/Resolving]
